FAERS Safety Report 6269301-9 (Version None)
Quarter: 2009Q3

REPORT INFORMATION
  Report Type: 
  Country: None (occurrence: None)
  Receive Date: 20090715
  Receipt Date: 20090709
  Transmission Date: 20100115
  Serious: Yes (Disabling, Other)
  Sender: FDA-Public Use
  Company Number: PHHO2009IT07253

PATIENT
  Sex: Female
  Weight: 89 kg

DRUGS (7)
  1. ZOLEDRONIC ACID [Suspect]
     Indication: METASTASES TO BONE
     Dosage: 4 MG, EVERY 3 MONTHS
     Route: 042
     Dates: start: 20080402
  2. VITAMIN D [Concomitant]
     Dosage: UNK
  3. CALCIUM [Concomitant]
     Dosage: UNK
  4. CHEMOTHERAPEUTICS NOS [Concomitant]
  5. CORTICOSTEROIDS [Concomitant]
  6. ANTIBIOTICS [Concomitant]
  7. NSAID'S [Concomitant]

REACTIONS (12)
  - ABSCESS MANAGEMENT [None]
  - BONE DENSITY DECREASED [None]
  - BONE FRAGMENTATION [None]
  - ERYTHEMA [None]
  - MASTICATION DISORDER [None]
  - NASAL TURBINATE ABNORMALITY [None]
  - ORAL CAVITY FISTULA [None]
  - OSTEONECROSIS [None]
  - PAIN [None]
  - SINUS DISORDER [None]
  - SWELLING [None]
  - TOOTH EXTRACTION [None]
